FAERS Safety Report 9113399 (Version 2)
Quarter: 2013Q1

REPORT INFORMATION
  Report Type: Report from Study
  Country: JP (occurrence: JP)
  Receive Date: 20130131
  Receipt Date: 20130226
  Transmission Date: 20140127
  Serious: Yes (Other)
  Sender: FDA-Public Use
  Company Number: PHHY2013JP007140

PATIENT
  Age: 88 Year
  Sex: Female
  Weight: 51 kg

DRUGS (4)
  1. EXELON [Suspect]
     Indication: DEMENTIA ALZHEIMER^S TYPE
     Dosage: 4.5 MG DAILY
     Route: 062
     Dates: start: 20120612, end: 20120702
  2. EXELON [Suspect]
     Dosage: 9 MG DAILY
     Route: 062
     Dates: start: 20120703, end: 20121126
  3. EXELON [Suspect]
     Dosage: 4.5 MG DAILY
     Route: 062
     Dates: start: 20121127, end: 20121218
  4. LYRICA [Concomitant]
     Indication: PAIN IN EXTREMITY
     Dosage: 75 MG, UNK
     Route: 048

REACTIONS (9)
  - Femur fracture [Not Recovered/Not Resolved]
  - Fracture pain [Unknown]
  - Fall [Not Recovered/Not Resolved]
  - Weight decreased [Unknown]
  - Local swelling [Unknown]
  - Dermatitis contact [Recovered/Resolved]
  - Skin exfoliation [Unknown]
  - Erythema [Unknown]
  - Pruritus [Unknown]
